FAERS Safety Report 5079643-0 (Version None)
Quarter: 2006Q3

REPORT INFORMATION
  Report Type: 
  Country: None (occurrence: None)
  Receive Date: 20060808
  Receipt Date: 20060726
  Transmission Date: 20061208
  Serious: Yes (Other)
  Sender: FDA-Public Use
  Company Number: 2005057187

PATIENT
  Age: 64 Year
  Sex: Male

DRUGS (9)
  1. FLUCONAZOLE [Suspect]
     Indication: CANDIDIASIS
     Dosage: 175 MG (50 MG, 1 IN 1 D),
  2. COTRIMOXAZOLE (SULFAMETHOXAZOLE - (SULFAMETHOXAZOLE, TRIMETHOPRIM) [Concomitant]
  3. BICARBONATE DE SODIUM; MACROGOL 33 (MACROGOL) [Concomitant]
  4. PREDNISOLONE M-SULFOBENZOATE SEL D (PREDNISOLONE) [Concomitant]
  5. HYDROXYZINE DICHLORHYDRATE (HYDROXYZINE HYDROCHLORIDE) [Concomitant]
  6. ESOMEPRAZOLE MAGNESIUM TRIHYDRATE (ESOMEPRAZOLE MAGNESIUM) [Concomitant]
  7. HEPARIN CALCIUM [Concomitant]
  8. MEROPENEME TRIHYDRATE (MEROPENEM TRIHYDRATE) [Concomitant]
  9. DARBEPOETINE ALFA (DARBEPOETIN ALFA) [Concomitant]

REACTIONS (3)
  - CONDITION AGGRAVATED [None]
  - INCORRECT DOSE ADMINISTERED [None]
  - RENAL FAILURE [None]
